FAERS Safety Report 20377064 (Version 1)
Quarter: 2022Q1

REPORT INFORMATION
  Report Type: Spontaneous
  Country: US (occurrence: US)
  Receive Date: 20220125
  Receipt Date: 20220125
  Transmission Date: 20220423
  Serious: No
  Sender: FDA-Public Use
  Company Number: US-SA-SAC20220119000894

PATIENT
  Sex: Female

DRUGS (8)
  1. KEVZARA [Suspect]
     Active Substance: SARILUMAB
     Indication: Rheumatoid arthritis
     Dosage: 200MG QOW
     Route: 058
     Dates: start: 20211129
  2. ATENOLOL [Concomitant]
     Active Substance: ATENOLOL
  3. ATIVAN [Concomitant]
     Active Substance: LORAZEPAM
  4. CALCIUM CARBONATE [Concomitant]
     Active Substance: CALCIUM CARBONATE
     Dosage: QD
  5. CARAFATE [Concomitant]
     Active Substance: SUCRALFATE
     Dosage: QD
  6. DEXILANT [Concomitant]
     Active Substance: DEXLANSOPRAZOLE
  7. ZYRTEC [Concomitant]
     Active Substance: CETIRIZINE HYDROCHLORIDE
  8. DAILY-VITE [Concomitant]

REACTIONS (1)
  - Condition aggravated [Unknown]
